FAERS Safety Report 17712550 (Version 4)
Quarter: 2020Q4

REPORT INFORMATION
  Report Type: Spontaneous
  Country: US (occurrence: US)
  Receive Date: 20200427
  Receipt Date: 20201013
  Transmission Date: 20210113
  Serious: Yes (Other)
  Sender: FDA-Public Use
  Company Number: US-PFIZER INC-2020165640

PATIENT
  Age: 41 Year
  Sex: Female

DRUGS (2)
  1. RASUVO [Concomitant]
     Active Substance: METHOTREXATE SODIUM
     Dosage: UNK
     Dates: end: 202006
  2. XELJANZ XR [Suspect]
     Active Substance: TOFACITINIB CITRATE
     Indication: RHEUMATOID ARTHRITIS
     Dosage: 11 MG, 1X/DAY
     Route: 048
     Dates: start: 20200418, end: 202006

REACTIONS (17)
  - Hyperhidrosis [Unknown]
  - Peptic ulcer [Unknown]
  - Inflammation [Unknown]
  - Systemic lupus erythematosus [Unknown]
  - White blood cell count decreased [Unknown]
  - Cough [Unknown]
  - Decreased appetite [Unknown]
  - Retching [Unknown]
  - Frustration tolerance decreased [Unknown]
  - Condition aggravated [Unknown]
  - Blood iron decreased [Unknown]
  - Pyrexia [Unknown]
  - Migraine [Unknown]
  - Nausea [Unknown]
  - Dyspnoea [Unknown]
  - Red blood cell count increased [Unknown]
  - Lethargy [Unknown]

NARRATIVE: CASE EVENT DATE: 2020
